FAERS Safety Report 12453258 (Version 2)
Quarter: 2016Q3

REPORT INFORMATION
  Report Type: Spontaneous
  Country: JP (occurrence: JP)
  Receive Date: 20160609
  Receipt Date: 20160727
  Transmission Date: 20161109
  Serious: Yes (Hospitalization, Disabling, Other)
  Sender: FDA-Public Use
  Company Number: JP-PFIZER INC-2016290400

PATIENT
  Age: 68 Year
  Sex: Male

DRUGS (4)
  1. RHEUMATREX [Suspect]
     Active Substance: METHOTREXATE SODIUM
     Dosage: 12 MG, FREQUENCY UNKNOWN
     Route: 048
     Dates: start: 20160514
  2. RHEUMATREX [Suspect]
     Active Substance: METHOTREXATE SODIUM
     Dosage: 6 MG, FREQUENCY UNKNOWN
     Route: 048
     Dates: start: 20160709
  3. RHEUMATREX [Suspect]
     Active Substance: METHOTREXATE SODIUM
     Indication: RHEUMATOID ARTHRITIS
     Dosage: 6MG, FREQUENCY UNKNOWN
     Route: 048
     Dates: start: 20150424, end: 20150425
  4. RHEUMATREX [Suspect]
     Active Substance: METHOTREXATE SODIUM
     Dosage: 8 MG, FREQUENCY UNKNOWN, (6MG AT MORNING, 2MG AT EVENING)
     Route: 048
     Dates: start: 20150502

REACTIONS (2)
  - Bladder cancer recurrent [Not Recovered/Not Resolved]
  - Bladder cancer [Recovered/Resolved]

NARRATIVE: CASE EVENT DATE: 201505
